FAERS Safety Report 7773077-3 (Version None)
Quarter: 2011Q3

REPORT INFORMATION
  Report Type: 
  Country: None (occurrence: None)
  Receive Date: 20110922
  Receipt Date: 20110913
  Transmission Date: 20111222
  Serious: Yes (Death)
  Sender: FDA-Public Use
  Company Number: US-MPIJNJ-2011-04270

PATIENT

DRUGS (6)
  1. PREDNISONE [Suspect]
     Dosage: 100 MG, CYCLIC
     Route: 048
  2. SULFAMETHOXAZOLE AND TRIMETHOPRIM [Concomitant]
     Indication: PRODUCT USED FOR UNKNOWN INDICATION
  3. VELCADE [Suspect]
     Dosage: 1.3 MG/M2, CYCLIC
  4. ACYCLOVIR [Concomitant]
     Indication: PRODUCT USED FOR UNKNOWN INDICATION
  5. CYCLOPHOSPHAMIDE [Suspect]
     Dosage: UNK
  6. RITUXIMAB [Suspect]
     Dosage: 375 MG/M2, CYCLIC

REACTIONS (1)
  - DEATH [None]
